FAERS Safety Report 25008141 (Version 1)
Quarter: 2025Q1

REPORT INFORMATION
  Report Type: Spontaneous
  Country: US (occurrence: US)
  Receive Date: 20250225
  Receipt Date: 20250225
  Transmission Date: 20250408
  Serious: No
  Sender: UROGEN PHARMA
  Company Number: US-UROGEN PHARMA LTD.-2024-UGN-000193

PATIENT

DRUGS (12)
  1. JELMYTO [Suspect]
     Active Substance: MITOMYCIN
     Indication: Product used for unknown indication
     Route: 065
  2. JELMYTO [Suspect]
     Active Substance: MITOMYCIN
     Route: 065
  3. JELMYTO [Suspect]
     Active Substance: MITOMYCIN
     Route: 065
  4. JELMYTO [Suspect]
     Active Substance: MITOMYCIN
     Route: 065
  5. JELMYTO [Suspect]
     Active Substance: MITOMYCIN
     Route: 065
  6. JELMYTO [Suspect]
     Active Substance: MITOMYCIN
     Route: 065
  7. JELMYTO [Suspect]
     Active Substance: MITOMYCIN
     Route: 065
  8. JELMYTO [Suspect]
     Active Substance: MITOMYCIN
     Route: 065
  9. JELMYTO [Suspect]
     Active Substance: MITOMYCIN
     Route: 065
  10. JELMYTO [Suspect]
     Active Substance: MITOMYCIN
     Route: 065
  11. JELMYTO [Suspect]
     Active Substance: MITOMYCIN
     Route: 065
  12. JELMYTO [Suspect]
     Active Substance: MITOMYCIN
     Route: 065

REACTIONS (1)
  - Haematuria [Not Recovered/Not Resolved]
